FAERS Safety Report 4863576-6 (Version None)
Quarter: 2005Q4

REPORT INFORMATION
  Report Type: 
  Country: None (occurrence: None)
  Receive Date: 20051222
  Receipt Date: 20050505
  Transmission Date: 20060501
  Serious: No
  Sender: FDA-Public Use
  Company Number: US-GLAXOSMITHKLINE-A0557421A

PATIENT
  Age: 67 Year
  Sex: Male

DRUGS (5)
  1. FLONASE [Suspect]
     Dosage: 2SPR TWICE PER DAY
     Route: 045
  2. ZYRTEC [Concomitant]
  3. LOTREL [Concomitant]
  4. CRESTOR [Concomitant]
  5. FLOMAX [Concomitant]

REACTIONS (1)
  - DIZZINESS [None]
